FAERS Safety Report 4449311-4 (Version None)
Quarter: 2004Q3

REPORT INFORMATION
  Report Type: 
  Country: None (occurrence: None)
  Receive Date: 20040909
  Receipt Date: 20040824
  Transmission Date: 20050211
  Serious: Yes (Other)
  Sender: FDA-Public Use
  Company Number: US_0408104980

PATIENT
  Age: 45 Year
  Sex: Female

DRUGS (3)
  1. PROZAC [Suspect]
     Indication: DEPRESSION
     Dosage: 20 MG/1 DAY
     Dates: start: 20040416, end: 20040504
  2. LEXAPRO [Concomitant]
  3. KLONOPIN [Concomitant]

REACTIONS (9)
  - ALANINE AMINOTRANSFERASE INCREASED [None]
  - AMNESIA [None]
  - ASPARTATE AMINOTRANSFERASE INCREASED [None]
  - BLOOD ALKALINE PHOSPHATASE INCREASED [None]
  - DYSPHORIA [None]
  - HEADACHE [None]
  - HEPATOTOXICITY [None]
  - HOT FLUSH [None]
  - RESTLESS LEGS SYNDROME [None]
